FAERS Safety Report 9028079 (Version 1)
Quarter: 2013Q1

REPORT INFORMATION
  Report Type: Spontaneous
  Country: US (occurrence: None)
  Receive Date: 20130114
  Receipt Date: 20130114
  Transmission Date: 20140127
  Serious: Yes (Other)
  Sender: FDA-Public Use
  Company Number: None

PATIENT
  Age: 55 Year
  Sex: Male

DRUGS (6)
  1. NORDITROPIN NORDIFLEX [Suspect]
  2. DHATEITRYL [Concomitant]
  3. CORTEF [Concomitant]
  4. SYNTHROID [Concomitant]
  5. VITAMIN B12 [Concomitant]
  6. VITAMIN D [Concomitant]

REACTIONS (1)
  - Thyroid cancer [None]
